FAERS Safety Report 23615147 (Version 3)
Quarter: 2025Q1

REPORT INFORMATION
  Report Type: Spontaneous
  Country: US (occurrence: US)
  Receive Date: 20240311
  Receipt Date: 20250305
  Transmission Date: 20250409
  Serious: Yes (Disabling, Other)
  Sender: AMGEN
  Company Number: US-HORIZON THERAPEUTICS-HZN-2024-002756

PATIENT
  Age: 77 Year
  Sex: Female

DRUGS (44)
  1. TEPEZZA [Suspect]
     Active Substance: TEPROTUMUMAB-TRBW
     Indication: Graves^ disease
     Dosage: 550 MILLIGRAM, Q3WK
     Route: 042
     Dates: start: 20201027
  2. TEPEZZA [Suspect]
     Active Substance: TEPROTUMUMAB-TRBW
     Indication: Endocrine ophthalmopathy
     Dosage: 1070 MILLIGRAM, Q3WK
     Route: 042
     Dates: start: 20201117
  3. TEPEZZA [Suspect]
     Active Substance: TEPROTUMUMAB-TRBW
     Dosage: 1050 MILLIGRAM, Q3WK
     Route: 042
     Dates: start: 20201208
  4. TEPEZZA [Suspect]
     Active Substance: TEPROTUMUMAB-TRBW
     Dosage: UNK, Q3WK
     Route: 042
     Dates: start: 20211115
  5. TEPEZZA [Suspect]
     Active Substance: TEPROTUMUMAB-TRBW
     Dosage: UNK, Q3WK
     Route: 042
     Dates: start: 20211202
  6. PREDNISONE [Suspect]
     Active Substance: PREDNISONE
     Indication: Product used for unknown indication
     Dosage: 50 MILLIGRAM, QD ( FOR 2 WEEKS)
     Route: 048
  7. PREDNISONE [Suspect]
     Active Substance: PREDNISONE
     Dosage: 40 MILLIGRAM, QD (FOR 2 WEEKS)
     Route: 048
  8. PREDNISONE [Suspect]
     Active Substance: PREDNISONE
     Dosage: 30 MILLIGRAM, QD ( 3 WEEKS)
     Route: 048
  9. PREDNISONE [Suspect]
     Active Substance: PREDNISONE
     Dosage: 20 MILLIGRAM, QD
     Route: 048
     Dates: start: 202003
  10. Calcium 600 plus vitamin d3 [Concomitant]
     Dosage: UNK, QD (2 TABLETS)
     Route: 065
  11. CRANBERRY [Concomitant]
     Active Substance: CRANBERRY
  12. POLYSPORIN [Concomitant]
     Active Substance: BACITRACIN ZINC\POLYMYXIN B SULFATE
     Dosage: UNK UNK, TID (FOR 1 WEEK)
     Route: 047
  13. Fml s.o.p. [Concomitant]
     Indication: Eye inflammation
     Dosage: UNK UNK, QID
     Route: 047
  14. GLUCOSAMINE [Concomitant]
     Active Substance: GLUCOSAMINE
     Dosage: UNK, QD (1500 COMPLEX)
     Route: 065
  15. PRINIVIL [Concomitant]
     Active Substance: LISINOPRIL
     Route: 048
  16. ZESTRIL [Concomitant]
     Active Substance: LISINOPRIL
     Route: 048
  17. LOTEMAX [Concomitant]
     Active Substance: LOTEPREDNOL ETABONATE
     Indication: Eye inflammation
     Dosage: UNK UNK, QID
  18. TAPAZOLE [Concomitant]
     Active Substance: METHIMAZOLE
     Dosage: 5 MILLIGRAM, QD (FOR THREE WEEK)
  19. TAPAZOLE [Concomitant]
     Active Substance: METHIMAZOLE
  20. LOPRESSOR [Concomitant]
     Active Substance: METOPROLOL TARTRATE
     Dosage: 25 MILLIGRAM (1/2 TAB Q12 HR FOR 6 DAYS)
  21. MYCOSTATIN [Concomitant]
     Active Substance: NYSTATIN
     Route: 048
  22. DELTASONE [Concomitant]
     Active Substance: PREDNISONE
     Route: 048
  23. DELTASONE [Concomitant]
     Active Substance: PREDNISONE
     Dosage: 5 MILLIGRAM, QD (FOR 1 WEEK)
     Route: 048
  24. DELTASONE [Concomitant]
     Active Substance: PREDNISONE
     Dosage: 10 MILLIGRAM, QD (FOR 1 WEEK)
     Route: 048
  25. DELTASONE [Concomitant]
     Active Substance: PREDNISONE
     Dosage: 15 MILLIGRAM, QD (FOR 1 WEEK)
     Route: 048
  26. DELTASONE [Concomitant]
     Active Substance: PREDNISONE
     Dosage: 20 MILLIGRAM, TID
     Route: 048
  27. Probiotic powder for Infant [Concomitant]
  28. SELENIUM [Concomitant]
     Active Substance: SELENIUM
     Dosage: 200 MICROGRAM, QD
     Route: 048
  29. SODIUM CHLORIDE [Concomitant]
     Active Substance: SODIUM CHLORIDE
     Dosage: UNK UNK, BID
  30. SODIUM CHLORIDE [Concomitant]
     Active Substance: SODIUM CHLORIDE
     Dosage: UNK, QD
  31. BACTRIM [Concomitant]
     Active Substance: SULFAMETHOXAZOLE\TRIMETHOPRIM
     Route: 048
  32. BACTRIM DS [Concomitant]
     Active Substance: SULFAMETHOXAZOLE\TRIMETHOPRIM
     Dosage: UNK UNK, QD
     Route: 048
  33. NEBCIN [Concomitant]
     Active Substance: TOBRAMYCIN SULFATE
     Dosage: UNK, QD (80MG/2ML)
     Route: 045
     Dates: start: 20151204
  34. HERBALS\TURMERIC [Concomitant]
     Active Substance: HERBALS\TURMERIC
  35. RECLAST [Concomitant]
     Active Substance: ZOLEDRONIC ACID
     Indication: Osteoporosis
     Dates: start: 20200818
  36. TOBI [Concomitant]
     Active Substance: TOBRAMYCIN
     Dosage: QD (300 MG/5 ML, TAKE 4 ML BY INHALATION)
     Route: 045
  37. ADVAIR HFA [Concomitant]
     Active Substance: FLUTICASONE PROPIONATE\SALMETEROL XINAFOATE
     Dosage: Q12H (2 PUFFS)  (MORNING AND EVENING)
     Dates: start: 20110407
  38. DIETARY SUPPLEMENT [Concomitant]
     Active Substance: DIETARY SUPPLEMENT
     Dosage: 10 MILLIGRAM, QD
     Route: 048
  39. THERATEARS [Concomitant]
     Active Substance: CARBOXYMETHYLCELLULOSE SODIUM
     Dosage: QD (3 TO 4 TIMES)
     Route: 047
  40. SODIUM CHLORIDE [Concomitant]
     Active Substance: SODIUM CHLORIDE
     Dosage: UNK, BID ( INHALES 7 PERCENT SALINE NEBULIZED WHEN NOT ON TOBRAMYCIN)
  41. LEVOFLOXACIN [Concomitant]
     Active Substance: LEVOFLOXACIN
     Dosage: 500 MILLIGRAM, QD
     Route: 048
  42. TOBRAMYCIN SULFATE [Concomitant]
     Active Substance: TOBRAMYCIN SULFATE
     Dosage: 240 MILLIGRAM, QD
     Dates: start: 20151204
  43. NYSTATIN [Concomitant]
     Active Substance: NYSTATIN
     Dosage: 5 MILLILITER, QID (100000 UNIT/ML) (SWISH AND SWALLOW)
     Route: 048
     Dates: start: 20151204
  44. METHIMAZOLE [Concomitant]
     Active Substance: METHIMAZOLE
     Dosage: UNK UNK, QD (1 TABLET)
     Route: 065

REACTIONS (46)
  - Deafness neurosensory [Unknown]
  - Disability [Not Recovered/Not Resolved]
  - Physical disability [Not Recovered/Not Resolved]
  - Mycobacterium avium complex infection [Unknown]
  - Injury [Not Recovered/Not Resolved]
  - Pain [Not Recovered/Not Resolved]
  - Emotional distress [Not Recovered/Not Resolved]
  - Impaired quality of life [Not Recovered/Not Resolved]
  - Economic problem [Not Recovered/Not Resolved]
  - Discomfort [Not Recovered/Not Resolved]
  - Concomitant disease aggravated [Not Recovered/Not Resolved]
  - Anxiety [Not Recovered/Not Resolved]
  - Deformity [Not Recovered/Not Resolved]
  - Product quality issue [Unknown]
  - Presbyopia [Unknown]
  - Balance disorder [Unknown]
  - Tinnitus [Not Recovered/Not Resolved]
  - Ear discomfort [Unknown]
  - Autophony [Unknown]
  - Facial spasm [Unknown]
  - C-reactive protein increased [Unknown]
  - Thyroxine free increased [Unknown]
  - Blood thyroid stimulating hormone decreased [Unknown]
  - Blood glucose increased [Unknown]
  - Blood pressure systolic increased [Unknown]
  - Lymphocyte count decreased [Unknown]
  - Neutrophil count increased [Unknown]
  - Red cell distribution width increased [Unknown]
  - White blood cell count increased [Unknown]
  - Heart rate increased [Unknown]
  - Contusion [Unknown]
  - Muscular weakness [Unknown]
  - Weight increased [Unknown]
  - Oedema peripheral [Unknown]
  - Oropharyngeal pain [Recovered/Resolved]
  - Palpitations [Unknown]
  - Leukocytosis [Unknown]
  - Night sweats [Unknown]
  - Chest pain [Unknown]
  - Myalgia [Unknown]
  - Rash [Unknown]
  - Skin discolouration [Unknown]
  - Paraesthesia [Unknown]
  - Hypoaesthesia [Unknown]
  - Insomnia [Unknown]
  - Aspergillus test positive [Unknown]

NARRATIVE: CASE EVENT DATE: 20200714
